FAERS Safety Report 12617279 (Version 1)
Quarter: 2016Q3

REPORT INFORMATION
  Report Type: Spontaneous
  Country: NL (occurrence: NL)
  Receive Date: 20160803
  Receipt Date: 20160803
  Transmission Date: 20161109
  Serious: Yes (Hospitalization, Disabling)
  Sender: FDA-Public Use
  Company Number: NL-ASTRAZENECA-2016SE81037

PATIENT
  Age: 8032 Day
  Sex: Female

DRUGS (2)
  1. SYMBICORT [Suspect]
     Active Substance: BUDESONIDE\FORMOTEROL FUMARATE DIHYDRATE
     Indication: ASTHMA
     Dosage: 200/6MCG/DOSIS SPUITBUS 120DO, 1 DF EVERYDAY
     Route: 055
     Dates: start: 20160427, end: 20160514
  2. NON SPECIFIED O.A.C. [Concomitant]
     Route: 030
     Dates: start: 2012

REACTIONS (5)
  - Palpitations [Not Recovered/Not Resolved]
  - Fatigue [Unknown]
  - Dyspnoea [Not Recovered/Not Resolved]
  - Tachycardia [Not Recovered/Not Resolved]
  - Chest discomfort [Not Recovered/Not Resolved]

NARRATIVE: CASE EVENT DATE: 20160511
